FAERS Safety Report 22349008 (Version 4)
Quarter: 2024Q1

REPORT INFORMATION
  Report Type: Spontaneous
  Country: US (occurrence: US)
  Receive Date: 20230522
  Receipt Date: 20240131
  Transmission Date: 20240410
  Serious: Yes (Hospitalization, Other)
  Sender: FDA-Public Use
  Company Number: US-009507513-2305USA005009

PATIENT
  Sex: Female

DRUGS (2)
  1. WELIREG [Suspect]
     Active Substance: BELZUTIFAN
     Indication: Von Hippel-Lindau disease
     Dosage: 120 MILLIGRAM (THREE PILLS DAILY), ONCE DAILY (QD)
     Route: 048
     Dates: start: 20211013, end: 20211216
  2. WELIREG [Suspect]
     Active Substance: BELZUTIFAN
     Indication: Brain neoplasm
     Dosage: 80 MILLIGRAM (TWO PILLS), ONCE DAILY (QD)
     Route: 048
     Dates: start: 20221024

REACTIONS (14)
  - Brain operation [Unknown]
  - Spinal cord operation [Unknown]
  - Arrhythmia [Unknown]
  - Neoplasm progression [Recovering/Resolving]
  - Hypoxia [Not Recovered/Not Resolved]
  - Blood test abnormal [Recovering/Resolving]
  - Frustration tolerance decreased [Unknown]
  - Confusional state [Unknown]
  - Memory impairment [Not Recovered/Not Resolved]
  - Palpitations [Unknown]
  - Somnolence [Not Recovered/Not Resolved]
  - Fatigue [Not Recovered/Not Resolved]
  - Anaemia [Recovering/Resolving]
  - Cardiac arrest [Unknown]

NARRATIVE: CASE EVENT DATE: 20210101
